FAERS Safety Report 9123546 (Version 2)
Quarter: 2013Q2

REPORT INFORMATION
  Report Type: Report from Study
  Country: FR (occurrence: FR)
  Receive Date: 20130115
  Receipt Date: 20130429
  Transmission Date: 20140414
  Serious: Yes (Other)
  Sender: FDA-Public Use
  Company Number: FR-SANOFI-AVENTIS-2013SA001151

PATIENT
  Age: 58 Year
  Sex: Male

DRUGS (12)
  1. RIFAMPICIN [Suspect]
     Indication: BACTERIAL INFECTION
     Route: 048
     Dates: start: 20121020, end: 20121022
  2. RIFAMPICIN [Suspect]
     Indication: BACTERIAL INFECTION
     Route: 048
     Dates: start: 20121025, end: 20121026
  3. RIFAMPICIN [Suspect]
     Indication: BACTERIAL INFECTION
     Route: 048
     Dates: start: 20121027
  4. ZYVOXID [Suspect]
     Indication: BACTERIAL INFECTION
     Route: 065
     Dates: start: 20121018
  5. CEFTRIAXONE SODIUM [Suspect]
     Dates: start: 20121018, end: 20121022
  6. ARIXTRA [Concomitant]
     Dates: start: 20121018, end: 20121018
  7. VENOFER [Concomitant]
     Dates: start: 20121018, end: 20121019
  8. DROLEPTAN [Concomitant]
     Dates: start: 20121018, end: 20121018
  9. INEXIUM [Concomitant]
     Dates: start: 20121018, end: 20121022
  10. MORPHINE [Concomitant]
     Dates: start: 20121018, end: 20121019
  11. PARACETAMOL [Concomitant]
     Dates: start: 20121018
  12. KETAMINE [Concomitant]
     Dates: start: 20121018, end: 20121019

REACTIONS (1)
  - Cholestasis [Recovered/Resolved]
